FAERS Safety Report 8019727-8 (Version None)
Quarter: 2012Q1

REPORT INFORMATION
  Report Type: 
  Country: None (occurrence: None)
  Receive Date: 20120103
  Receipt Date: 20111201
  Transmission Date: 20120608
  Serious: Yes (Life-Threatening, Hospitalization)
  Sender: FDA-Public Use
  Company Number: FR-GLAXOSMITHKLINE-B0766338A

PATIENT
  Sex: Female

DRUGS (10)
  1. BISOPROLOL FUMARATE [Suspect]
     Route: 048
     Dates: end: 20111024
  2. DIGOXIN [Concomitant]
  3. ROVAMYCINE [Concomitant]
     Indication: LUNG DISORDER
     Dates: start: 20110901, end: 20110928
  4. DIGOXIN [Suspect]
     Route: 048
     Dates: end: 20111024
  5. LASIX [Concomitant]
  6. ECONAZOLE NITRATE [Concomitant]
  7. CLAFORAN [Concomitant]
     Indication: LUNG DISORDER
     Dates: start: 20110901, end: 20110928
  8. AMOXICILLIN TRIHYDRATE [Suspect]
     Indication: LUNG INFECTION
     Dosage: 1G THREE TIMES PER DAY
     Route: 048
     Dates: start: 20111021, end: 20111024
  9. ACETAMINOPHEN [Concomitant]
  10. UVEDOSE [Concomitant]

REACTIONS (9)
  - BLOOD CREATININE INCREASED [None]
  - HAEMOGLOBIN DECREASED [None]
  - WHITE BLOOD CELL COUNT DECREASED [None]
  - MULTI-ORGAN FAILURE [None]
  - CARDIAC FAILURE [None]
  - ACUTE GENERALISED EXANTHEMATOUS PUSTULOSIS [None]
  - INTERNATIONAL NORMALISED RATIO INCREASED [None]
  - HYPOTENSION [None]
  - TOXIC SKIN ERUPTION [None]
